FAERS Safety Report 13079645 (Version 1)
Quarter: 2017Q1

REPORT INFORMATION
  Report Type: Spontaneous
  Country: IT (occurrence: IT)
  Receive Date: 20170103
  Receipt Date: 20170103
  Transmission Date: 20170428
  Serious: Yes (Hospitalization)
  Sender: FDA-Public Use
  Company Number: IT-ACCORD-046978

PATIENT
  Age: 49 Year
  Sex: Male
  Weight: 55 kg

DRUGS (4)
  1. CISPLATIN ACCORD [Suspect]
     Active Substance: CISPLATIN
     Indication: LIP AND/OR ORAL CAVITY CANCER
     Dosage: IN MAY/JUN-2016 HAD PERFORMED 2 CYCLES THEN WAS DISCONTINUED AND THEN RESUMED ON 28-NOV-2016
     Route: 042
     Dates: start: 20160501, end: 20161219
  2. SOLDESAM [Concomitant]
     Active Substance: DEXAMETHASONE
     Indication: PREMEDICATION
     Dosage: STRENGTH: 4 MG/ML
  3. ERBITUX [Suspect]
     Active Substance: CETUXIMAB
     Indication: LIP AND/OR ORAL CAVITY CANCER
     Route: 042
     Dates: start: 20161017
  4. RANITIDINE. [Concomitant]
     Active Substance: RANITIDINE
     Indication: PREMEDICATION
     Dosage: STRENGTH: 50 MG/ ML
     Route: 042
     Dates: start: 20161017, end: 20161219

REACTIONS (5)
  - Dysphemia [Recovering/Resolving]
  - Confusional state [Recovering/Resolving]
  - Bronchostenosis [Recovering/Resolving]
  - Dyspnoea [Recovering/Resolving]
  - Pruritus [Recovering/Resolving]

NARRATIVE: CASE EVENT DATE: 20161219
